FAERS Safety Report 10575920 (Version 2)
Quarter: 2014Q4

REPORT INFORMATION
  Report Type: Not Available
  Country: FR (occurrence: FR)
  Receive Date: 20141111
  Receipt Date: 20141203
  Transmission Date: 20150529
  Serious: Yes (Other)
  Sender: FDA-Public Use
  Company Number: FR-BEH-2014046137

PATIENT
  Age: 48 Year
  Sex: Female

DRUGS (4)
  1. CELLCEPT [Concomitant]
     Active Substance: MYCOPHENOLATE MOFETIL\MYCOPHENOLATE MOFETIL HYDROCHLORIDE
  2. CORTANCYL [Concomitant]
     Active Substance: PREDNISONE
     Dates: end: 20141023
  3. PRIVIGEN [Suspect]
     Active Substance: HUMAN IMMUNOGLOBULIN G
     Indication: POLYNEUROPATHY
     Dosage: (BATCH NO. 4326300086, DOSE:200ML; BATCH NUMBER: 4326100034, DOSE: 25ML)
     Dates: start: 20141023, end: 20141023
  4. PRIVIGEN [Suspect]
     Active Substance: HUMAN IMMUNOGLOBULIN G
     Dosage: (BATCH NO. 4326300086, DOSE:200ML; BATCH NUMBER: 4326100034, DOSE: 25ML)
     Dates: start: 20141022, end: 20141022

REACTIONS (6)
  - Hyperthermia [Recovered/Resolved]
  - Headache [Unknown]
  - Fatigue [Unknown]
  - Pyelonephritis [Unknown]
  - Chills [Unknown]
  - Odynophagia [Unknown]

NARRATIVE: CASE EVENT DATE: 20141022
